FAERS Safety Report 5442599-2 (Version None)
Quarter: 2007Q3

REPORT INFORMATION
  Report Type: 
  Country: None (occurrence: None)
  Receive Date: 20070731
  Receipt Date: 20070614
  Transmission Date: 20080115
  Serious: No
  Sender: FDA-Public Use
  Company Number: US200706003520

PATIENT
  Age: 65 Year
  Sex: Female

DRUGS (4)
  1. BYETTA [Suspect]
     Indication: TYPE 2 DIABETES MELLITUS
     Dosage: 10 UG, 2/D, SUBCUTANEOUS
     Route: 058
     Dates: start: 20070612
  2. GLIPIZIDE [Concomitant]
  3. AVANDIA [Concomitant]
  4. LORAZEPAM [Concomitant]

REACTIONS (12)
  - BLOOD GLUCOSE DECREASED [None]
  - CHEST DISCOMFORT [None]
  - CHILLS [None]
  - DIZZINESS [None]
  - HEADACHE [None]
  - MUSCULAR WEAKNESS [None]
  - NASAL CONGESTION [None]
  - NAUSEA [None]
  - NERVOUSNESS [None]
  - REFLUX OESOPHAGITIS [None]
  - RHINORRHOEA [None]
  - VOMITING [None]
